FAERS Safety Report 8757059 (Version 2)
Quarter: 2012Q4

REPORT INFORMATION
  Report Type: 
  Country: US (occurrence: US)
  Receive Date: 20120828
  Receipt Date: 20121003
  Transmission Date: 20130627
  Serious: Yes (Hospitalization)
  Sender: FDA-Public Use
  Company Number: US-PFIZER INC-2012207054

PATIENT
  Age: 54 Year
  Sex: Male

DRUGS (1)
  1. VFEND [Suspect]
     Indication: LUNG DISORDER
     Dosage: 200 mg, 2x/day
     Dates: start: 20120319

REACTIONS (1)
  - Pulmonary congestion [Unknown]
